FAERS Safety Report 4506921-3 (Version None)
Quarter: 2004Q4

REPORT INFORMATION
  Report Type: 
  Country: None (occurrence: None)
  Receive Date: 20041117
  Receipt Date: 20041108
  Transmission Date: 20050328
  Serious: Yes (Hospitalization)
  Sender: FDA-Public Use
  Company Number: 2004-11-0540

PATIENT
  Age: 4 Year
  Sex: Male

DRUGS (8)
  1. AERIUS (DESLORATADINE) SYRUP 'LIKE CLARINEX' [Suspect]
     Indication: RHINITIS ALLERGIC
     Dosage: 1.25 MG QD ORAL
     Route: 048
     Dates: start: 20040702, end: 20041029
  2. PREDNISONE [Concomitant]
  3. HYDROCORTISONE [Concomitant]
  4. CALCIUM CHLORIDE [Concomitant]
  5. RHINOCORT [Concomitant]
  6. ANTIBIOTIC [Concomitant]
  7. DUPHALAC [Concomitant]
  8. CETIRIZINE HCL [Concomitant]

REACTIONS (2)
  - CONSTIPATION [None]
  - LARYNGITIS [None]
